FAERS Safety Report 8050670-4 (Version None)
Quarter: 2012Q1

REPORT INFORMATION
  Report Type: 
  Country: None (occurrence: None)
  Receive Date: 20120117
  Receipt Date: 20120117
  Transmission Date: 20120608
  Serious: Yes (Other)
  Sender: FDA-Public Use
  Company Number: None

PATIENT
  Age: 58 Year
  Sex: Female
  Weight: 60 kg

DRUGS (1)
  1. VICKS DAYQUIL -COLD AND FLU- [Suspect]
     Indication: NASOPHARYNGITIS
     Dosage: 2 CAPSULES
     Route: 048
     Dates: start: 20120109, end: 20120111

REACTIONS (6)
  - PRURITUS [None]
  - LIP SWELLING [None]
  - SWOLLEN TONGUE [None]
  - AURICULAR SWELLING [None]
  - RASH [None]
  - EYE SWELLING [None]
